FAERS Safety Report 4745962-8 (Version None)
Quarter: 2005Q3

REPORT INFORMATION
  Report Type: 
  Country: None (occurrence: None)
  Receive Date: 20050816
  Receipt Date: 19980514
  Transmission Date: 20060218
  Serious: Yes (Hospitalization)
  Sender: FDA-Public Use
  Company Number: DE-AMGEN-98050034

PATIENT
  Sex: Male
  Weight: 79 kg

DRUGS (2)
  1. ETANERCEPT [Suspect]
     Indication: RHEUMATOID ARTHRITIS
     Route: 058
     Dates: start: 19980420
  2. ETANERCEPT [Suspect]

REACTIONS (4)
  - IMPAIRED HEALING [None]
  - SURGICAL PROCEDURE REPEATED [None]
  - SUTURE RUPTURE [None]
  - TENDON RUPTURE [None]
